FAERS Safety Report 7651424-0 (Version None)
Quarter: 2011Q3

REPORT INFORMATION
  Report Type: 
  Country: None (occurrence: None)
  Receive Date: 20110802
  Receipt Date: 20110721
  Transmission Date: 20111222
  Serious: Yes (Hospitalization, Disabling, Other)
  Sender: FDA-Public Use
  Company Number: PHEH2009US16948

PATIENT
  Sex: Male

DRUGS (1)
  1. ZOMETA [Suspect]

REACTIONS (18)
  - ARTHRITIS [None]
  - PNEUMONIA [None]
  - SLEEP APNOEA SYNDROME [None]
  - SKIN LESION [None]
  - ANXIETY [None]
  - OSTEOMYELITIS [None]
  - GASTROOESOPHAGEAL REFLUX DISEASE [None]
  - OEDEMA [None]
  - SQUAMOUS CELL CARCINOMA [None]
  - PAIN [None]
  - PULMONARY GRANULOMA [None]
  - MULTIPLE MYELOMA [None]
  - OSTEONECROSIS OF JAW [None]
  - INJURY [None]
  - ANHEDONIA [None]
  - CELLULITIS [None]
  - PLEURAL EFFUSION [None]
  - INTERVERTEBRAL DISC DEGENERATION [None]
